FAERS Safety Report 16076178 (Version 1)
Quarter: 2019Q1

REPORT INFORMATION
  Report Type: Spontaneous
  Country: US (occurrence: US)
  Receive Date: 20190315
  Receipt Date: 20190315
  Transmission Date: 20190418
  Serious: No
  Sender: FDA-Public Use
  Company Number: US-TEVA-2019-US-1014012

PATIENT
  Age: 33 Year
  Sex: Female

DRUGS (1)
  1. BALZIVA [Suspect]
     Active Substance: ETHINYL ESTRADIOL\NORETHINDRONE
     Indication: CONTRACEPTION
     Dosage: DOSE STRENGTH:  0.4 MG/0.035 MG
     Route: 065
     Dates: start: 201810

REACTIONS (5)
  - Weight increased [Unknown]
  - Mood altered [Unknown]
  - Urticaria [Unknown]
  - Dry skin [Unknown]
  - Product substitution issue [Unknown]

NARRATIVE: CASE EVENT DATE: 201810
